FAERS Safety Report 7413593-7 (Version None)
Quarter: 2011Q2

REPORT INFORMATION
  Report Type: 
  Country: None (occurrence: None)
  Receive Date: 20110413
  Receipt Date: 20110406
  Transmission Date: 20111010
  Serious: Yes (Other)
  Sender: FDA-Public Use
  Company Number: US-US-EMD SERONO, INC.-7052795

PATIENT
  Sex: Female

DRUGS (3)
  1. REBIF [Suspect]
     Indication: PRODUCT USED FOR UNKNOWN INDICATION
     Dates: start: 20020909
  2. ZOCOR [Concomitant]
  3. UNSPECIFIED MEDICATION [Concomitant]
     Indication: HAEMORRHAGE

REACTIONS (2)
  - LIVER FUNCTION TEST ABNORMAL [None]
  - UTERINE POLYP [None]
